FAERS Safety Report 7911412-3 (Version None)
Quarter: 2011Q4

REPORT INFORMATION
  Report Type: 
  Country: None (occurrence: None)
  Receive Date: 20111109
  Receipt Date: 20111031
  Transmission Date: 20120403
  Serious: Yes (Other)
  Sender: FDA-Public Use
  Company Number: DKLU1074402

PATIENT
  Age: 7 Month
  Sex: Female
  Weight: 9.4 kg

DRUGS (5)
  1. FENTANYL [Suspect]
     Indication: SEDATION
  2. NEMBUTAL [Suspect]
     Indication: SEDATION
  3. LORAZEPAM [Suspect]
     Indication: SEDATION
  4. HYDROMORPHONE HCL [Suspect]
     Indication: SEDATION
  5. DIPHENHYDRAMINE HCL [Suspect]
     Indication: SEDATION

REACTIONS (15)
  - DELIRIUM [None]
  - FACE OEDEMA [None]
  - MOANING [None]
  - RESPIRATORY DISTRESS [None]
  - INJURY [None]
  - HEPATIC ENZYME INCREASED [None]
  - TACHYCARDIA [None]
  - AGITATION [None]
  - CONDITION AGGRAVATED [None]
  - METASTATIC NEOPLASM [None]
  - HYPOXIA [None]
  - SCREAMING [None]
  - THROMBOCYTOPENIA [None]
  - APNOEA [None]
  - PAIN [None]
